FAERS Safety Report 5405482-4 (Version None)
Quarter: 2007Q3

REPORT INFORMATION
  Report Type: 
  Country: None (occurrence: None)
  Receive Date: 20070803
  Receipt Date: 20070724
  Transmission Date: 20080115
  Serious: Yes (Other)
  Sender: FDA-Public Use
  Company Number: BR-PFIZER INC-2007058923

PATIENT
  Sex: Female

DRUGS (3)
  1. CHAMPIX [Suspect]
     Indication: TOBACCO USER
     Route: 048
     Dates: start: 20070626, end: 20070713
  2. LIPITOR [Concomitant]
     Route: 048
  3. LOSARTAN POTASSIUM [Concomitant]
     Indication: HYPERTENSION
     Route: 048

REACTIONS (3)
  - LABYRINTHITIS [None]
  - NAUSEA [None]
  - VERTIGO [None]
